FAERS Safety Report 4895148-1 (Version None)
Quarter: 2006Q1

REPORT INFORMATION
  Report Type: 
  Country: None (occurrence: None)
  Receive Date: 20060130
  Receipt Date: 20050209
  Transmission Date: 20060701
  Serious: Yes (Hospitalization, Disabling)
  Sender: FDA-Public Use
  Company Number: PHHO2005NZ02336

PATIENT
  Age: 54 Year
  Sex: Female
  Weight: 80.2 kg

DRUGS (2)
  1. ZOLEDRONIC ACID [Suspect]
     Dosage: 4MG EVERY 6 MONTHS
     Route: 042
     Dates: start: 20040702
  2. CGS 20267 [Suspect]
     Dosage: 2.5 MG, QD
     Route: 048
     Dates: start: 20040702

REACTIONS (8)
  - ARTHRALGIA [None]
  - CARPAL TUNNEL DECOMPRESSION [None]
  - CARPAL TUNNEL SYNDROME [None]
  - HYPERAESTHESIA [None]
  - HYPOAESTHESIA [None]
  - PARAESTHESIA [None]
  - PERIPHERAL SENSORY NEUROPATHY [None]
  - TRIGGER FINGER [None]
